FAERS Safety Report 23739218 (Version 2)
Quarter: 2024Q2

REPORT INFORMATION
  Report Type: Spontaneous
  Country: US (occurrence: US)
  Receive Date: 20240413
  Receipt Date: 20240418
  Transmission Date: 20240715
  Serious: No
  Sender: FDA-Public Use
  Company Number: US-ABBVIE-5716009

PATIENT
  Sex: Female

DRUGS (2)
  1. FML [Suspect]
     Active Substance: FLUOROMETHOLONE
     Indication: Herpes zoster
     Route: 047
  2. FML [Suspect]
     Active Substance: FLUOROMETHOLONE
     Indication: Intraocular pressure increased
     Dosage: TIME INTERVAL: 0.33333333 WEEKS
     Route: 047

REACTIONS (1)
  - Off label use [Unknown]
